FAERS Safety Report 25591560 (Version 1)
Quarter: 2025Q3

REPORT INFORMATION
  Report Type: Spontaneous
  Country: US (occurrence: None)
  Receive Date: 20250721
  Receipt Date: 20250721
  Transmission Date: 20251021
  Serious: Yes (Other)
  Sender: FDA-CTU
  Company Number: None

PATIENT
  Age: 76 Year
  Sex: Female
  Weight: 73.48 kg

DRUGS (7)
  1. RIABNI [Suspect]
     Active Substance: RITUXIMAB-ARRX
  2. ATENOLOL [Concomitant]
     Active Substance: ATENOLOL
  3. ASPIRIN [Concomitant]
     Active Substance: ASPIRIN
  4. Hydroyarea [Concomitant]
  5. EXCEDRIN [Concomitant]
     Active Substance: ACETAMINOPHEN\ASPIRIN\CAFFEINE
  6. tylenon [Concomitant]
  7. Ibeprophin [Concomitant]

REACTIONS (3)
  - Platelet count decreased [None]
  - Device information output issue [None]
  - Device defective [None]

NARRATIVE: CASE EVENT DATE: 20250721
